FAERS Safety Report 5704387-9 (Version None)
Quarter: 2008Q2

REPORT INFORMATION
  Report Type: 
  Country: None (occurrence: None)
  Receive Date: 20080414
  Receipt Date: 20080403
  Transmission Date: 20081010
  Serious: Yes (Death)
  Sender: FDA-Public Use
  Company Number: A0722622A

PATIENT
  Age: 85 Year
  Sex: Female
  Weight: 64 kg

DRUGS (6)
  1. SERETIDE [Suspect]
     Indication: ASTHMA
     Route: 055
     Dates: start: 20060101, end: 20080320
  2. SINGULAIR [Concomitant]
     Dates: start: 20070101, end: 20080320
  3. DIOVAN [Concomitant]
     Dates: start: 20040101, end: 20080320
  4. MANIDIPINE [Concomitant]
     Dates: start: 20070101, end: 20080320
  5. INDAPAMIDE [Concomitant]
     Dates: start: 20040101, end: 20080320
  6. RIVOTRIL [Concomitant]
     Dates: start: 20000101, end: 20080320

REACTIONS (1)
  - LUNG INFECTION [None]
